FAERS Safety Report 5413966-8 (Version None)
Quarter: 2007Q3

REPORT INFORMATION
  Report Type: 
  Country: None (occurrence: None)
  Receive Date: 20070814
  Receipt Date: 20070717
  Transmission Date: 20080115
  Serious: No
  Sender: FDA-Public Use
  Company Number: US-BOEHRINGER INGELHEIM PHARMACEUTICALS, INC.-2007-BP-18963BP

PATIENT
  Sex: Male

DRUGS (6)
  1. CLONIDINE HCL [Suspect]
     Indication: HYPERTENSION
     Route: 048
     Dates: start: 20020101
  2. ALTACE [Concomitant]
  3. AVALIDE [Concomitant]
  4. TRIAMTERENE [Concomitant]
  5. HYDRALAZINE HCL [Concomitant]
  6. TENEX [Concomitant]

REACTIONS (1)
  - HYPERTENSION [None]
